FAERS Safety Report 14283299 (Version 1)
Quarter: 2017Q4

REPORT INFORMATION
  Report Type: Spontaneous
  Country: NL (occurrence: NL)
  Receive Date: 20171213
  Receipt Date: 20171213
  Transmission Date: 20180321
  Serious: Yes (Other)
  Sender: FDA-Public Use
  Company Number: NL-GLAXOSMITHKLINE-NL2017189281

PATIENT
  Age: 49 Year
  Sex: Female
  Weight: 61 kg

DRUGS (2)
  1. PARACETAMOL [Concomitant]
     Active Substance: ACETAMINOPHEN
     Indication: PRODUCT USED FOR UNKNOWN INDICATION
     Dosage: 500MG 2 TABLETS
     Route: 065
  2. VOLTAREN-K [Suspect]
     Active Substance: DICLOFENAC POTASSIUM
     Indication: HERNIA
     Dosage: TO START  2 TABLETS (ACCORDING TO PACKAGE LEAFLET AND DRUGSTORE)
     Route: 050
     Dates: start: 20171016

REACTIONS (4)
  - Heart rate irregular [Recovered/Resolved]
  - Pruritus generalised [Recovered/Resolved]
  - Hyperhidrosis [Recovered/Resolved]
  - Paraesthesia [Recovered/Resolved]

NARRATIVE: CASE EVENT DATE: 20171016
